FAERS Safety Report 8593484-9 (Version None)
Quarter: 2012Q3

REPORT INFORMATION
  Report Type: 
  Country: None (occurrence: None)
  Receive Date: 20120814
  Receipt Date: 20120807
  Transmission Date: 20120928
  Serious: Yes (Hospitalization)
  Sender: FDA-Public Use
  Company Number: US-TEVA-352727USA

PATIENT
  Sex: Female

DRUGS (5)
  1. REYETAZ [Concomitant]
     Indication: LENTIVIRUS TEST POSITIVE
  2. TRUVADA [Concomitant]
     Indication: LENTIVIRUS TEST POSITIVE
  3. ACTIQ [Suspect]
     Indication: PAIN
     Dosage: 3-5/DAY
     Route: 048
     Dates: start: 20060101
  4. NORVIR [Concomitant]
     Indication: LENTIVIRUS TEST POSITIVE
  5. OXYCONTIN [Concomitant]
     Indication: PAIN
     Dosage: 60 MILLIGRAM DAILY;
     Route: 048

REACTIONS (3)
  - HEPATIC PAIN [None]
  - HEPATIC ENZYME INCREASED [None]
  - OFF LABEL USE [None]
